FAERS Safety Report 25733134 (Version 3)
Quarter: 2025Q4

REPORT INFORMATION
  Report Type: Spontaneous
  Country: US (occurrence: US)
  Receive Date: 20250828
  Receipt Date: 20251013
  Transmission Date: 20260118
  Serious: Yes (Other)
  Sender: SHENZHEN TECHDOW PHARMACEUTICAL
  Company Number: US-Techdow-2025Techdow000091

PATIENT
  Age: 73 Year
  Sex: Male
  Weight: 62 kg

DRUGS (3)
  1. HEPARIN SODIUM [Suspect]
     Active Substance: HEPARIN SODIUM
     Indication: Anticoagulant therapy
     Dosage: 8000UNIT
     Dates: start: 20250812, end: 20250812
  2. HEPARIN SODIUM [Suspect]
     Active Substance: HEPARIN SODIUM
     Indication: Anticoagulant therapy
     Dosage: 3000UNIT
     Dates: start: 20250812, end: 20250812
  3. HEPARIN SODIUM [Suspect]
     Active Substance: HEPARIN SODIUM
     Indication: Anticoagulant therapy
     Dosage: 5000UNIT
     Dates: start: 20250812, end: 20250812

REACTIONS (7)
  - Vascular stent thrombosis [Recovered/Resolved]
  - Chest pain [Recovered/Resolved]
  - Nausea [Recovered/Resolved]
  - Bradycardia [Recovered/Resolved]
  - Hypotension [Recovered/Resolved]
  - Product quality issue [Unknown]
  - Therapeutic response decreased [Unknown]

NARRATIVE: CASE EVENT DATE: 20250812
